FAERS Safety Report 11316643 (Version 1)
Quarter: 2015Q3

REPORT INFORMATION
  Report Type: Spontaneous
  Country: SI (occurrence: SI)
  Receive Date: 20150728
  Receipt Date: 20150728
  Transmission Date: 20151125
  Serious: Yes (Hospitalization)
  Sender: FDA-Public Use
  Company Number: SI-BAYER-2015-382422

PATIENT
  Age: 23 Year
  Sex: Female
  Weight: 50 kg

DRUGS (1)
  1. JAYDESS [Suspect]
     Active Substance: LEVONORGESTREL
     Dosage: UNK
     Route: 015
     Dates: end: 201507

REACTIONS (6)
  - Salpingitis [Recovered/Resolved]
  - Pyrexia [Recovered/Resolved]
  - Inflammation [Recovered/Resolved]
  - Abdominal pain lower [Recovered/Resolved]
  - Dysuria [Recovered/Resolved]
  - Painful defaecation [Recovered/Resolved]

NARRATIVE: CASE EVENT DATE: 20150628
